FAERS Safety Report 5866832-8 (Version None)
Quarter: 2008Q3

REPORT INFORMATION
  Report Type: 
  Country: None (occurrence: None)
  Receive Date: 20080902
  Receipt Date: 20080820
  Transmission Date: 20090109
  Serious: Yes (Hospitalization)
  Sender: FDA-Public Use
  Company Number: JP-JNJFOC-20060102097

PATIENT
  Sex: Male
  Weight: 76 kg

DRUGS (24)
  1. LEUSTATIN [Suspect]
     Route: 041
  2. LEUSTATIN [Suspect]
     Route: 041
  3. LEUSTATIN [Suspect]
     Indication: B-CELL LYMPHOMA
     Route: 041
  4. MITOXANTRONE HYDROCHLORIDE [Suspect]
     Route: 041
  5. MITOXANTRONE HYDROCHLORIDE [Suspect]
     Route: 041
  6. MITOXANTRONE HYDROCHLORIDE [Suspect]
     Indication: B-CELL LYMPHOMA
     Route: 041
  7. DEXAMETHASONE TAB [Suspect]
     Route: 048
  8. DEXAMETHASONE TAB [Suspect]
     Route: 048
  9. DEXAMETHASONE TAB [Suspect]
     Indication: B-CELL LYMPHOMA
     Dosage: DOSE NOT SPECIFIED
     Route: 048
  10. DIFLUCAN [Suspect]
     Indication: ANTIFUNGAL PROPHYLAXIS
     Route: 048
  11. MEROPEN [Suspect]
     Indication: PERITONITIS
     Route: 041
  12. MEROPEN [Suspect]
     Indication: DIVERTICULITIS
     Route: 041
  13. OMEPRAZOLE [Concomitant]
     Indication: PROPHYLAXIS AGAINST GASTROINTESTINAL ULCER
     Route: 048
  14. OMEPRAZOLE [Concomitant]
     Indication: REFLUX OESOPHAGITIS
     Route: 048
  15. SULFAMETHOXAZOLE AND TRIMETHOPRIM [Concomitant]
     Indication: ANTIFUNGAL PROPHYLAXIS
     Route: 048
  16. SULFAMETHOXAZOLE AND TRIMETHOPRIM [Concomitant]
     Indication: BRONCHITIS
     Route: 048
  17. KYTRIL [Concomitant]
     Route: 041
  18. KYTRIL [Concomitant]
     Route: 041
  19. KYTRIL [Concomitant]
     Indication: PROPHYLAXIS OF NAUSEA AND VOMITING
     Route: 041
  20. PURSENNID [Concomitant]
     Indication: CONSTIPATION
     Route: 048
  21. MAGNESIUM OXIDE [Concomitant]
     Indication: CONSTIPATION
     Route: 048
  22. CRAVIT [Concomitant]
     Indication: INFECTION PROPHYLAXIS
     Route: 048
  23. PRODIF [Concomitant]
     Indication: ANTIFUNGAL PROPHYLAXIS
     Route: 041
  24. FAMOTIDINE [Concomitant]
     Indication: PROPHYLAXIS AGAINST GASTROINTESTINAL ULCER
     Route: 041

REACTIONS (12)
  - ALANINE AMINOTRANSFERASE INCREASED [None]
  - ASPARTATE AMINOTRANSFERASE INCREASED [None]
  - BLOOD ALBUMIN DECREASED [None]
  - BLOOD BILIRUBIN INCREASED [None]
  - DIVERTICULAR PERFORATION [None]
  - HAEMOGLOBIN DECREASED [None]
  - LYMPHOCYTE COUNT DECREASED [None]
  - NEUTROPHIL COUNT DECREASED [None]
  - PERITONITIS [None]
  - PLATELET COUNT DECREASED [None]
  - PROTEIN TOTAL DECREASED [None]
  - WHITE BLOOD CELL COUNT DECREASED [None]
